FAERS Safety Report 16271443 (Version 1)
Quarter: 2019Q2

REPORT INFORMATION
  Report Type: Report from Study
  Country: None (occurrence: BR)
  Receive Date: 20190505
  Receipt Date: 20190505
  Transmission Date: 20190711
  Serious: Yes (Hospitalization)
  Sender: FDA-Public Use
  Company Number: BR-ABBVIE-19K-020-2764845-00

PATIENT
  Sex: Male
  Weight: 74 kg

DRUGS (1)
  1. HUMIRA [Suspect]
     Active Substance: ADALIMUMAB
     Indication: CROHN^S DISEASE
     Route: 058
     Dates: start: 20130101

REACTIONS (2)
  - Platelet count decreased [Unknown]
  - Hypophagia [Recovered/Resolved]

NARRATIVE: CASE EVENT DATE: 201805
